FAERS Safety Report 18723373 (Version 1)
Quarter: 2021Q1

REPORT INFORMATION
  Report Type: Spontaneous
  Country: US (occurrence: US)
  Receive Date: 20210108
  Receipt Date: 20210108
  Transmission Date: 20210419
  Serious: Yes (Other)
  Sender: FDA-Public Use
  Company Number: None

PATIENT
  Age: 48 Year
  Sex: Female
  Weight: 85.5 kg

DRUGS (2)
  1. CRINONE [Suspect]
     Active Substance: PROGESTERONE
     Indication: IN VITRO FERTILISATION
     Dosage: ?          QUANTITY:1 SUPPOSITORY(IES);?
     Route: 067
     Dates: start: 20201227, end: 20201227
  2. PRENATAL VITAMINS [Concomitant]
     Active Substance: VITAMINS

REACTIONS (4)
  - Foetal exposure during pregnancy [None]
  - Vaginal haemorrhage [None]
  - Maternal exposure during pregnancy [None]
  - Abortion spontaneous [None]

NARRATIVE: CASE EVENT DATE: 20201227
